FAERS Safety Report 4920084-1 (Version None)
Quarter: 2006Q1

REPORT INFORMATION
  Report Type: 
  Country: None (occurrence: None)
  Receive Date: 20060217
  Receipt Date: 20060206
  Transmission Date: 20060701
  Serious: Yes (Death)
  Sender: FDA-Public Use
  Company Number: 030

PATIENT
  Sex: Male
  Weight: 136.0791 kg

DRUGS (3)
  1. FAZACLO ODT [Suspect]
     Indication: SCHIZOPHRENIA
     Dosage: 900 MG PO DAILY
     Route: 048
     Dates: start: 20050713, end: 20060201
  2. GEODON [Concomitant]
  3. ATIVAN [Concomitant]

REACTIONS (2)
  - MYOCARDIAL INFARCTION [None]
  - SUDDEN DEATH [None]
